FAERS Safety Report 16542649 (Version 4)
Quarter: 2022Q2

REPORT INFORMATION
  Report Type: Other
  Country: US (occurrence: None)
  Receive Date: 20190709
  Receipt Date: 20220519
  Transmission Date: 20220721
  Serious: Yes (Other)
  Sender: FDA-Public Use
  Company Number: US-ROCHE-2345436

PATIENT
  Age: 73 Year
  Sex: Female
  Weight: 68.100 kg

DRUGS (9)
  1. OCREVUS [Suspect]
     Active Substance: OCRELIZUMAB
     Indication: Relapsing-remitting multiple sclerosis
     Route: 042
     Dates: start: 20170524, end: 201706
  2. OCREVUS [Suspect]
     Active Substance: OCRELIZUMAB
     Dosage: FULL DOSES ;ONGOING: YES?07/JUN/2018, 06/DEC/2018, 06/JUN/2019
     Route: 042
     Dates: start: 20171207
  3. OCREVUS [Suspect]
     Active Substance: OCRELIZUMAB
     Route: 042
     Dates: start: 20191205
  4. IMVEXXY [Concomitant]
     Active Substance: ESTRADIOL
     Indication: Lichen sclerosus
     Route: 067
     Dates: start: 2017
  5. CYCLOBENZAPRINE [Concomitant]
     Active Substance: CYCLOBENZAPRINE
     Indication: Muscle relaxant therapy
     Route: 048
     Dates: start: 200707
  6. CYCLOBENZAPRINE [Concomitant]
     Active Substance: CYCLOBENZAPRINE
     Route: 048
     Dates: start: 2010
  7. CANNABIS SATIVA SUBSP. INDICA TOP [Concomitant]
     Active Substance: CANNABIS SATIVA SUBSP. INDICA TOP
     Route: 048
     Dates: start: 2008
  8. IRON [Concomitant]
     Active Substance: IRON
     Route: 048
     Dates: start: 2015
  9. VITAMIN D3 [Concomitant]
     Active Substance: CHOLECALCIFEROL
     Route: 048

REACTIONS (12)
  - Herpes zoster [Recovered/Resolved]
  - Multiple sclerosis [Not Recovered/Not Resolved]
  - Upper respiratory tract infection [Not Recovered/Not Resolved]
  - Fatigue [Recovered/Resolved]
  - Herpes virus infection [Recovered/Resolved]
  - Therapeutic product effect decreased [Unknown]
  - Illness [Unknown]
  - Lichen sclerosus [Not Recovered/Not Resolved]
  - Skin infection [Not Recovered/Not Resolved]
  - Abdominal distension [Recovered/Resolved]
  - Distractibility [Not Recovered/Not Resolved]
  - Photosensitivity reaction [Unknown]

NARRATIVE: CASE EVENT DATE: 20180501
